FAERS Safety Report 7579931-X (Version None)
Quarter: 2011Q2

REPORT INFORMATION
  Report Type: 
  Country: None (occurrence: None)
  Receive Date: 20110622
  Receipt Date: 20110607
  Transmission Date: 20111010
  Serious: Yes (Hospitalization)
  Sender: FDA-Public Use
  Company Number: 2011AP001187

PATIENT
  Age: 61 Year
  Sex: Male

DRUGS (6)
  1. PHENOXYMETHYLPENICILLIN [Suspect]
     Indication: PRODUCT USED FOR UNKNOWN INDICATION
  2. OMEPRAZOLE [Suspect]
     Indication: PRODUCT USED FOR UNKNOWN INDICATION
  3. SIMVASTATIN [Suspect]
     Indication: PRODUCT USED FOR UNKNOWN INDICATION
  4. ASPIRIN [Concomitant]
  5. CLOPIDOGREL [Suspect]
     Indication: PRODUCT USED FOR UNKNOWN INDICATION
  6. DIPYRIDAMOLE [Concomitant]

REACTIONS (16)
  - RESTLESSNESS [None]
  - LIVER INJURY [None]
  - LIVEDO RETICULARIS [None]
  - ABDOMINAL PAIN UPPER [None]
  - PYREXIA [None]
  - WEIGHT DECREASED [None]
  - DRY SKIN [None]
  - HEPATITIS E [None]
  - SLEEP DISORDER [None]
  - PALLOR [None]
  - GYNAECOMASTIA [None]
  - HEADACHE [None]
  - HEPATOTOXICITY [None]
  - VOMITING [None]
  - PARIETAL CELL ANTIBODY POSITIVE [None]
  - CEREBROVASCULAR ACCIDENT [None]
